FAERS Safety Report 11144184 (Version 1)
Quarter: 2015Q2

REPORT INFORMATION
  Report Type: Spontaneous
  Country: BR (occurrence: BR)
  Receive Date: 20150528
  Receipt Date: 20150528
  Transmission Date: 20150821
  Serious: Yes (Other)
  Sender: FDA-Public Use
  Company Number: BR-SUN PHARMACEUTICAL INDUSTRIES LTD-2015R3-97989

PATIENT
  Age: 13 Year
  Sex: Female

DRUGS (3)
  1. EBASTEL [Suspect]
     Active Substance: EBASTINE
     Indication: SUICIDE ATTEMPT
     Dosage: 10 DF, SINGLE
     Route: 065
     Dates: start: 20150504, end: 20150504
  2. MIONEVRIX [Suspect]
     Active Substance: CARISOPRODOL\CYANOCOBALAMIN\METAMIZOLE\PYRIDOXINE\THIAMINE
     Indication: SUICIDE ATTEMPT
     Dosage: 20 DF, SINGLE
     Route: 065
     Dates: start: 20150504
  3. FLUOXETINE [Suspect]
     Active Substance: FLUOXETINE\FLUOXETINE HYDROCHLORIDE
     Indication: SUICIDE ATTEMPT
     Dosage: 10 DF, SINGLE
     Route: 065
     Dates: start: 20150504, end: 20150504

REACTIONS (5)
  - Intentional overdose [Unknown]
  - Somnolence [Unknown]
  - Suicide attempt [Unknown]
  - Confusional state [Unknown]
  - Dizziness [Unknown]

NARRATIVE: CASE EVENT DATE: 20150504
